FAERS Safety Report 6165845-9 (Version None)
Quarter: 2009Q2

REPORT INFORMATION
  Report Type: 
  Country: None (occurrence: None)
  Receive Date: 20090423
  Receipt Date: 20090415
  Transmission Date: 20091009
  Serious: Yes (Other)
  Sender: FDA-Public Use
  Company Number: US-GENENTECH-281523

PATIENT

DRUGS (2)
  1. LUCENTIS [Suspect]
     Indication: MACULAR DEGENERATION
     Route: 031
  2. AVASTIN [Suspect]
     Indication: MACULAR DEGENERATION
     Route: 031

REACTIONS (1)
  - INTRAOCULAR PRESSURE INCREASED [None]
